FAERS Safety Report 24467253 (Version 1)
Quarter: 2024Q4

REPORT INFORMATION
  Report Type: Report from Study
  Country: US (occurrence: US)
  Receive Date: 20241018
  Receipt Date: 20241018
  Transmission Date: 20250115
  Serious: No
  Sender: ROCHE
  Company Number: US-ROCHE-3557138

PATIENT

DRUGS (1)
  1. XOLAIR [Suspect]
     Active Substance: OMALIZUMAB
     Indication: Product used for unknown indication
     Route: 065

REACTIONS (6)
  - Flushing [Unknown]
  - Fatigue [Unknown]
  - Asthenia [Unknown]
  - Vasodilatation [Unknown]
  - Postural orthostatic tachycardia syndrome [Unknown]
  - Drug ineffective [Unknown]
